FAERS Safety Report 8010316-8 (Version None)
Quarter: 2011Q4

REPORT INFORMATION
  Report Type: 
  Country: None (occurrence: None)
  Receive Date: 20111228
  Receipt Date: 20111220
  Transmission Date: 20120403
  Serious: Yes (Other)
  Sender: FDA-Public Use
  Company Number: JP-ASTELLAS-2011JP009515

PATIENT
  Age: 80 Year
  Sex: Female

DRUGS (2)
  1. VESICARE [Suspect]
     Dosage: 10 MG, UID/QD
     Route: 048
     Dates: start: 20111101
  2. ARICEPT [Concomitant]
     Dosage: UNK
     Route: 065
     Dates: start: 20111201

REACTIONS (1)
  - DEMENTIA [None]
